FAERS Safety Report 9310277 (Version 1)
Quarter: 2013Q2

REPORT INFORMATION
  Report Type: Report from Study
  Country: CA (occurrence: CA)
  Receive Date: 20130527
  Receipt Date: 20130527
  Transmission Date: 20140414
  Serious: Yes (Death, Hospitalization)
  Sender: FDA-Public Use
  Company Number: PHHY2008CA04350

PATIENT
  Age: 52 Year
  Sex: Male

DRUGS (7)
  1. CLOZARIL [Suspect]
     Dosage: 700 MG, QD
     Dates: start: 20031028
  2. CLOZARIL [Suspect]
     Dosage: 300 MG, QD
  3. EPIVAL [Concomitant]
     Dosage: 750 MG, UNK
     Dates: end: 20080402
  4. COGENTIN [Concomitant]
     Dosage: 1 MG, UNK
     Dates: end: 20080401
  5. DULCOLAX [Concomitant]
     Dosage: 15 MG, QHS
  6. NOZINAN                                 /NET/ [Concomitant]
     Dosage: 50 MG, QHS
  7. NAPROSYN [Concomitant]
     Dosage: 500 MG, BID

REACTIONS (6)
  - Neoplasm malignant [Fatal]
  - Confusional state [Unknown]
  - Pneumonia [Unknown]
  - Pyrexia [Unknown]
  - Delirium [Unknown]
  - White blood cell count decreased [Recovered/Resolved]
